FAERS Safety Report 4357535-X (Version None)
Quarter: 2004Q2

REPORT INFORMATION
  Report Type: 
  Country: None (occurrence: None)
  Receive Date: 20040510
  Receipt Date: 20040428
  Transmission Date: 20050107
  Serious: Yes (Hospitalization)
  Sender: FDA-Public Use
  Company Number: 04P-062-0259254-00

PATIENT
  Age: 44 Year
  Sex: Male
  Weight: 72 kg

DRUGS (5)
  1. AKINETON [Suspect]
     Indication: SUICIDE ATTEMPT
     Dosage: SEE IMAGE
     Route: 048
     Dates: start: 20040401, end: 20040401
  2. DICLOFENAC [Suspect]
     Indication: SUICIDE ATTEMPT
     Dosage: 4 TABLET, ONCE, PER ORAL
     Route: 048
     Dates: start: 20040401, end: 20040401
  3. LORAZEPAM [Suspect]
     Indication: SUICIDE ATTEMPT
     Dosage: 2 MG, 2 IN 1 DOSE, PER ORAL
     Route: 048
     Dates: start: 20040401, end: 20040401
  4. PANTOPRAZOLE SODIUM [Suspect]
     Indication: SUICIDE ATTEMPT
     Dosage: 2 TABLET, ONCE, PER ORAL
     Route: 048
     Dates: start: 20040401, end: 20040401
  5. CHLORPROTHIXENE HYDROCHLORIDE [Suspect]
     Indication: SUICIDE ATTEMPT
     Dosage: 30 MG, ONCE, PER ORAL
     Route: 048
     Dates: start: 20040401, end: 20040401

REACTIONS (3)
  - FATIGUE [None]
  - OVERDOSE [None]
  - SUICIDE ATTEMPT [None]
